FAERS Safety Report 7311826-9 (Version None)
Quarter: 2011Q1

REPORT INFORMATION
  Report Type: 
  Country: None (occurrence: None)
  Receive Date: 20110224
  Receipt Date: 20110217
  Transmission Date: 20110831
  Serious: Yes (Hospitalization, Other)
  Sender: FDA-Public Use
  Company Number: US-BAYER-2011-004089

PATIENT
  Sex: Female

DRUGS (1)
  1. MIRENA [Suspect]
     Indication: CONTRACEPTION
     Dosage: 20 ?G/D, CONT
     Route: 015
     Dates: start: 20080327, end: 20100705

REACTIONS (18)
  - CHILLS [None]
  - SCAR [None]
  - NAUSEA [None]
  - PAIN [None]
  - AGITATION [None]
  - ABDOMINAL PAIN LOWER [None]
  - IRRITABILITY [None]
  - PELVIC INFECTION [None]
  - PYREXIA [None]
  - VISION BLURRED [None]
  - TOOTH FRACTURE [None]
  - DIZZINESS [None]
  - PELVIC PAIN [None]
  - HEADACHE [None]
  - ANXIETY [None]
  - MUSCLE SPASMS [None]
  - FRUSTRATION [None]
  - WEIGHT INCREASED [None]
